FAERS Safety Report 19890651 (Version 1)
Quarter: 2021Q3

REPORT INFORMATION
  Report Type: Spontaneous
  Country: UA (occurrence: UA)
  Receive Date: 20210928
  Receipt Date: 20210928
  Transmission Date: 20211014
  Serious: Yes (Hospitalization, Other)
  Sender: FDA-Public Use
  Company Number: UA-REGENERON PHARMACEUTICALS, INC.-2021-88986

PATIENT

DRUGS (3)
  1. EYLEA [Suspect]
     Active Substance: AFLIBERCEPT
     Dosage: 0.05 ML, ONCE
     Route: 031
     Dates: start: 20210729, end: 20210729
  2. EYLEA [Suspect]
     Active Substance: AFLIBERCEPT
     Dosage: 0.05 ML, ONCE; BOTH EYES; LAST DOSE PRIOR TO EVENT
     Route: 031
     Dates: start: 20210902, end: 20210902
  3. EYLEA [Suspect]
     Active Substance: AFLIBERCEPT
     Indication: NEOVASCULAR AGE-RELATED MACULAR DEGENERATION
     Dosage: 0.05 ML, ONCE; AT 1 MONTH INTERVALS; TOTAL OF 3 INJECTIONS TO RIGHT EYE AND 2 INJECTIONS TO LEFT EYE
     Route: 031
     Dates: start: 20210629

REACTIONS (4)
  - Eye pain [Unknown]
  - Visual acuity reduced [Unknown]
  - Blindness unilateral [Unknown]
  - Endophthalmitis [Unknown]

NARRATIVE: CASE EVENT DATE: 202109
